FAERS Safety Report 8829310 (Version 1)
Quarter: 2012Q4

REPORT INFORMATION
  Report Type: 
  Country: GB (occurrence: GB)
  Receive Date: 20121009
  Receipt Date: 20121009
  Transmission Date: 20130627
  Serious: Yes (Other)
  Sender: FDA-Public Use
  Company Number: GB-AMGEN-GBRSP2012056835

PATIENT
  Age: 61 Year
  Sex: Male
  Weight: 73 kg

DRUGS (3)
  1. ETANERCEPT [Suspect]
     Indication: RHEUMATOID ARTHRITIS
     Dosage: 50 mg, qwk
     Route: 058
     Dates: start: 201207
  2. LEFLUNOMIDE [Concomitant]
     Dosage: 10 mg, 1x/day
     Route: 048
     Dates: start: 2004
  3. PREDNISOLONE [Concomitant]
     Dosage: 10 mg, 1x/day
     Route: 048

REACTIONS (8)
  - Oedema peripheral [Recovered/Resolved]
  - Pain in extremity [Recovered/Resolved]
  - Weight bearing difficulty [Recovered/Resolved]
  - Joint range of motion decreased [Recovered/Resolved]
  - Pain [Recovered/Resolved]
  - Hyperhidrosis [Recovered/Resolved]
  - Monoplegia [Recovered/Resolved]
  - Injection site reaction [Not Recovered/Not Resolved]
